FAERS Safety Report 4919085-9 (Version None)
Quarter: 2006Q1

REPORT INFORMATION
  Report Type: 
  Country: None (occurrence: None)
  Receive Date: 20060222
  Receipt Date: 20060213
  Transmission Date: 20060701
  Serious: Yes (Other)
  Sender: FDA-Public Use
  Company Number: PHEH2006US02132

PATIENT
  Age: 71 Year
  Sex: Female

DRUGS (1)
  1. DIOVAN [Suspect]
     Dosage: UNK, QD
     Route: 048
     Dates: start: 20041201, end: 20050101

REACTIONS (2)
  - ARTERIAL THERAPEUTIC PROCEDURE [None]
  - DRUG INEFFECTIVE [None]
